FAERS Safety Report 6131986-5 (Version None)
Quarter: 2009Q1

REPORT INFORMATION
  Report Type: 
  Country: None (occurrence: None)
  Receive Date: 20090325
  Receipt Date: 20090318
  Transmission Date: 20090719
  Serious: Yes (Other)
  Sender: FDA-Public Use
  Company Number: PHHY2009JP10892

PATIENT
  Age: 23 Year
  Sex: Male

DRUGS (1)
  1. ZADITEN AL [Suspect]
     Indication: SEASONAL ALLERGY
     Dosage: 2 DF, DAILY
     Route: 048
     Dates: start: 20090312, end: 20090318

REACTIONS (1)
  - EPISTAXIS [None]
